FAERS Safety Report 7448534-X (Version None)
Quarter: 2011Q2

REPORT INFORMATION
  Report Type: 
  Country: None (occurrence: None)
  Receive Date: 20110429
  Receipt Date: 20100816
  Transmission Date: 20111010
  Serious: No
  Sender: FDA-Public Use
  Company Number: US-ASTRAZENECA-2010SE26741

PATIENT
  Age: 74 Year
  Sex: Male
  Weight: 64.4 kg

DRUGS (4)
  1. AMLODIPINE [Concomitant]
  2. NEXIUM [Suspect]
     Route: 048
  3. NEXIUM [Suspect]
     Route: 048
     Dates: end: 20081101
  4. CALCIUM SUPPLEMENTS [Concomitant]

REACTIONS (5)
  - BODY HEIGHT DECREASED [None]
  - BARRETT'S OESOPHAGUS [None]
  - DRUG DOSE OMISSION [None]
  - DIARRHOEA HAEMORRHAGIC [None]
  - OSTEOPOROSIS [None]
